FAERS Safety Report 15167133 (Version 4)
Quarter: 2018Q3

REPORT INFORMATION
  Report Type: Spontaneous
  Country: US (occurrence: US)
  Receive Date: 20180719
  Receipt Date: 20180903
  Transmission Date: 20181010
  Serious: No
  Sender: FDA-Public Use
  Company Number: US-PFIZER INC-2018287011

PATIENT
  Age: 62 Year
  Sex: Female
  Weight: 64.41 kg

DRUGS (4)
  1. NICOTROL [Suspect]
     Active Substance: NICOTINE
     Dosage: 4 MG, MONTHLY
     Dates: start: 20180614
  2. NICOTROL [Suspect]
     Active Substance: NICOTINE
     Dosage: 4 MG, DAILY (THREE TO FOUR TIMES PER DAY)
     Dates: start: 20180614
  3. NICOTROL [Suspect]
     Active Substance: NICOTINE
     Indication: SMOKING CESSATION THERAPY
     Dosage: 4 MG, DAILY (TWO TO THREE TIMES PER DAY)
     Dates: start: 20180614
  4. NICOTROL [Suspect]
     Active Substance: NICOTINE
     Dosage: UNK, AS NEEDED
     Dates: start: 2018

REACTIONS (6)
  - Dry throat [Recovering/Resolving]
  - Oropharyngeal pain [Unknown]
  - Intentional product misuse [Unknown]
  - Cough [Recovering/Resolving]
  - Product use issue [Unknown]
  - Drug ineffective [Not Recovered/Not Resolved]

NARRATIVE: CASE EVENT DATE: 20180614
